FAERS Safety Report 6089079-1 (Version None)
Quarter: 2009Q1

REPORT INFORMATION
  Report Type: 
  Country: None (occurrence: None)
  Receive Date: 20090224
  Receipt Date: 20090218
  Transmission Date: 20090719
  Serious: Yes (Hospitalization, Other)
  Sender: FDA-Public Use
  Company Number: US-JNJFOC-20081206479

PATIENT
  Sex: Male
  Weight: 97.52 kg

DRUGS (1)
  1. VIADUR [Suspect]
     Indication: PROSTATE CANCER
     Route: 058

REACTIONS (2)
  - MUSCULAR WEAKNESS [None]
  - ORTHOSTATIC HYPOTENSION [None]
